FAERS Safety Report 7312920-9 (Version None)
Quarter: 2011Q1

REPORT INFORMATION
  Report Type: 
  Country: None (occurrence: None)
  Receive Date: 20110224
  Receipt Date: 20110215
  Transmission Date: 20110831
  Serious: Yes (Death)
  Sender: FDA-Public Use
  Company Number: JP-MERCK-1102USA01129

PATIENT
  Age: 85 Year
  Sex: Male
  Weight: 38 kg

DRUGS (4)
  1. DIOVAN [Concomitant]
     Indication: HYPERTENSION
     Route: 048
  2. STROMECTOL [Suspect]
     Indication: ACARODERMATITIS
     Route: 048
     Dates: start: 20101009, end: 20101009
  3. ARICEPT [Concomitant]
     Indication: DEMENTIA
     Route: 048
  4. EXCEGRAN [Concomitant]
     Indication: EPILEPSY
     Route: 048

REACTIONS (1)
  - CARDIO-RESPIRATORY ARREST [None]
